FAERS Safety Report 4557951-7 (Version None)
Quarter: 2005Q1

REPORT INFORMATION
  Report Type: 
  Country: None (occurrence: None)
  Receive Date: 20050121
  Receipt Date: 20040227
  Transmission Date: 20050727
  Serious: No
  Sender: FDA-Public Use
  Company Number: US-BRISTOL-MYERS SQUIBB COMPANY-12518874

PATIENT
  Age: 54 Year
  Sex: Male

DRUGS (6)
  1. SERZONE [Suspect]
     Route: 048
  2. PRINIVIL [Concomitant]
  3. CLARITIN [Concomitant]
  4. NASONEX [Concomitant]
  5. LEVAQUIN [Concomitant]
  6. ZESTRIL [Concomitant]

REACTIONS (5)
  - ABDOMINAL PAIN [None]
  - ALANINE AMINOTRANSFERASE INCREASED [None]
  - BLOOD ALKALINE PHOSPHATASE INCREASED [None]
  - DIZZINESS [None]
  - HEADACHE [None]
